FAERS Safety Report 7988853-1 (Version None)
Quarter: 2011Q4

REPORT INFORMATION
  Report Type: 
  Country: None (occurrence: None)
  Receive Date: 20111215
  Receipt Date: 20111215
  Transmission Date: 20120403
  Serious: Yes (Hospitalization)
  Sender: FDA-Public Use
  Company Number: None

PATIENT
  Age: 75 Year
  Sex: Male
  Weight: 101.1521 kg

DRUGS (1)
  1. JALYN [Suspect]
     Dosage: 1 CAPSULE DAILY
     Dates: end: 20111125

REACTIONS (11)
  - HEADACHE [None]
  - RHINORRHOEA [None]
  - ASTHENIA [None]
  - CHILLS [None]
  - INSOMNIA [None]
  - BLISTER [None]
  - SKIN EXFOLIATION [None]
  - DYSPNOEA [None]
  - DIZZINESS [None]
  - OROPHARYNGEAL PAIN [None]
  - ARRHYTHMIA [None]
